FAERS Safety Report 19732289 (Version 2)
Quarter: 2021Q4

REPORT INFORMATION
  Report Type: Spontaneous
  Country: CA (occurrence: CA)
  Receive Date: 20210820
  Receipt Date: 20211008
  Transmission Date: 20220303
  Serious: Yes (Other)
  Sender: FDA-Public Use
  Company Number: CA-CELLTRION INC.-2021CA008537

PATIENT

DRUGS (6)
  1. INFLECTRA [Suspect]
     Active Substance: INFLIXIMAB-DYYB
     Indication: Colitis ulcerative
     Dosage: 932 MG INDUCTION AT Q 0 , 2 , 6 WEEKS
     Route: 042
     Dates: start: 20180907, end: 20181017
  2. INFLECTRA [Suspect]
     Active Substance: INFLIXIMAB-DYYB
     Dosage: 10 MG/KG, EVERY 4 WEEK
     Route: 042
     Dates: start: 20181130, end: 20200606
  3. INFLECTRA [Suspect]
     Active Substance: INFLIXIMAB-DYYB
     Dosage: 10 MG/KG DOSE: 10 MG/KG (1000 MG) AT WEEK 0, 2, + 6, THEN EVERY 4 WEEKS(RE-INDUCTION)
     Route: 042
     Dates: start: 20200801
  4. INFLECTRA [Suspect]
     Active Substance: INFLIXIMAB-DYYB
     Dosage: 10 MG/KG DOSE: 10 MG/KG (1000 MG) AT WEEK 0, 2, + 6, THEN EVERY 4 WEEKS(RE-INDUCTION)
     Route: 042
     Dates: start: 20210424
  5. INFLECTRA [Suspect]
     Active Substance: INFLIXIMAB-DYYB
     Dosage: 10 MG/KG DOSE: 10 MG/KG (1000 MG) AT WEEK 0, 2, + 6, THEN EVERY 4 WEEKS(RE-INDUCTION)
     Route: 042
     Dates: start: 20210522
  6. INFLECTRA [Suspect]
     Active Substance: INFLIXIMAB-DYYB
     Dosage: 10 MG/KG DOSE: 10 MG/KG (1000 MG) AT WEEK 0, 2, + 6, THEN EVERY 4 WEEKS(RE-INDUCTION)
     Route: 042
     Dates: start: 20210619

REACTIONS (5)
  - Arthropathy [Unknown]
  - Off label use [Unknown]
  - Intentional product use issue [Unknown]
  - Off label use [Unknown]
  - Blood pressure increased [Unknown]

NARRATIVE: CASE EVENT DATE: 20181130
